FAERS Safety Report 6843695-5 (Version None)
Quarter: 2010Q3

REPORT INFORMATION
  Report Type: 
  Country: None (occurrence: None)
  Receive Date: 20100714
  Receipt Date: 20100714
  Transmission Date: 20110219
  Serious: No
  Sender: FDA-Public Use
  Company Number: None

PATIENT
  Age: 28 Year
  Sex: Female
  Weight: 68.0396 kg

DRUGS (1)
  1. CETIRIZINE HCL [Suspect]
     Indication: MIDDLE EAR EFFUSION
     Dates: start: 20100301, end: 20100602

REACTIONS (1)
  - PRURITUS GENERALISED [None]
